FAERS Safety Report 10143410 (Version 1)
Quarter: 2014Q2

REPORT INFORMATION
  Report Type: Spontaneous
  Country: US (occurrence: US)
  Receive Date: 20140430
  Receipt Date: 20140430
  Transmission Date: 20141212
  Serious: Yes (Other)
  Sender: FDA-Public Use
  Company Number: US-B.I. PHARMACEUTICALS,INC./RIDGEFIELD-2014-BI-18452BP

PATIENT
  Age: 78 Year
  Sex: Female

DRUGS (8)
  1. SPIRIVA [Suspect]
     Indication: CHRONIC OBSTRUCTIVE PULMONARY DISEASE
     Dosage: 18 MCG
     Route: 055
     Dates: start: 201402
  2. SPIRIVA [Suspect]
     Indication: EMPHYSEMA
  3. SPIRIVA [Suspect]
     Indication: BRONCHITIS
  4. STEROIDS [Concomitant]
     Indication: BRONCHITIS
     Route: 048
     Dates: start: 201402
  5. UNKNOWN NEBULIZER [Concomitant]
     Indication: BRONCHITIS
     Dosage: FORMULATION: INHALATION SOLUTION
     Route: 055
     Dates: start: 201402
  6. ADVAIR [Concomitant]
     Indication: CHRONIC OBSTRUCTIVE PULMONARY DISEASE
     Dosage: FORMULATION: INHALATION AEROSOL
     Route: 055
     Dates: start: 2010
  7. ADVAIR [Concomitant]
     Indication: EMPHYSEMA
  8. PLAVIX [Concomitant]
     Indication: THROMBOSIS IN DEVICE
     Dosage: 75 MG
     Route: 048
     Dates: start: 2013

REACTIONS (5)
  - Basal cell carcinoma [Recovered/Resolved]
  - Skin papilloma [Recovered/Resolved]
  - Rash pruritic [Recovered/Resolved]
  - Peripheral swelling [Not Recovered/Not Resolved]
  - Arthritis [Not Recovered/Not Resolved]
